FAERS Safety Report 5193793-X (Version None)
Quarter: 2006Q4

REPORT INFORMATION
  Report Type: 
  Country: None (occurrence: None)
  Receive Date: 20061228
  Receipt Date: 20061218
  Transmission Date: 20070319
  Serious: Yes (Other)
  Sender: FDA-Public Use
  Company Number: US-ELI_LILLY_AND_COMPANY-US200612003132

PATIENT
  Age: 41 Year
  Sex: Female

DRUGS (8)
  1. CYMBALTA [Suspect]
     Indication: ANXIETY
     Dosage: 60 MG, DAILY (1/D)
  2. ACIPHEX [Concomitant]
     Indication: GASTROOESOPHAGEAL REFLUX DISEASE
     Dosage: 20 MG, DAILY (1/D)
  3. RANITIDINE [Concomitant]
     Indication: GASTROOESOPHAGEAL REFLUX DISEASE
     Dosage: 300 MG, EACH EVENING
  4. DOCUSATE [Concomitant]
     Dosage: UNK, AS NEEDED
  5. VITAMIN CAP [Concomitant]
  6. ASPIRIN [Concomitant]
     Dosage: 81 MG, DAILY (1/D)
  7. CALCIUM [Concomitant]
     Dosage: UNK, DAILY (1/D)
  8. ZYRTEC [Concomitant]
     Dosage: 10 MG, DAILY (1/D)

REACTIONS (1)
  - BLOOD CREATINE PHOSPHOKINASE INCREASED [None]
